FAERS Safety Report 11588307 (Version 1)
Quarter: 2015Q4

REPORT INFORMATION
  Report Type: Spontaneous
  Country: US (occurrence: None)
  Receive Date: 20151001
  Receipt Date: 20151001
  Transmission Date: 20160304
  Serious: No
  Sender: FDA-Public Use
  Company Number: None

PATIENT
  Age: 62 Year
  Sex: Male
  Weight: 87 kg

DRUGS (1)
  1. RISPERIDONE. [Suspect]
     Active Substance: RISPERIDONE
     Indication: SCHIZOPHRENIA, PARANOID TYPE
     Route: 048
     Dates: start: 20140714, end: 20150519

REACTIONS (4)
  - Blood prolactin increased [None]
  - Thinking abnormal [None]
  - Gynaecomastia [None]
  - Aggression [None]

NARRATIVE: CASE EVENT DATE: 20150519
